FAERS Safety Report 6731754-7 (Version None)
Quarter: 2010Q2

REPORT INFORMATION
  Report Type: 
  Country: None (occurrence: None)
  Receive Date: 20100519
  Receipt Date: 20100512
  Transmission Date: 20101027
  Serious: Yes (Other)
  Sender: FDA-Public Use
  Company Number: GB-PFIZER INC-2010059566

PATIENT
  Age: 66 Year
  Sex: Female

DRUGS (1)
  1. CHAMPIX [Suspect]
     Indication: SMOKING CESSATION THERAPY
     Dosage: 2 MG, UNK
     Route: 048
     Dates: start: 20100215, end: 20100419

REACTIONS (2)
  - CONDITION AGGRAVATED [None]
  - MENTAL DISORDER [None]
